FAERS Safety Report 14261889 (Version 1)
Quarter: 2017Q4

REPORT INFORMATION
  Report Type: Spontaneous
  Country: US (occurrence: US)
  Receive Date: 20171208
  Receipt Date: 20171208
  Transmission Date: 20180321
  Serious: Yes (Hospitalization, Other)
  Sender: FDA-Public Use
  Company Number: US-ALEMBIC PHARMACUETICALS LIMITED-2017SCAL000959

PATIENT

DRUGS (6)
  1. CLONIDINE HYDROCHLORIDE. [Suspect]
     Active Substance: CLONIDINE HYDROCHLORIDE
     Dosage: INTRATHECAL PUMP WAS REDUCED TO ONE TENTH OF PREVIOUS DOSE
  2. CLONIDINE HYDROCHLORIDE. [Suspect]
     Active Substance: CLONIDINE HYDROCHLORIDE
     Indication: ANALGESIC THERAPY
     Dosage: 50 MCG/ML
     Route: 037
  3. BUPIVACAINE. [Suspect]
     Active Substance: BUPIVACAINE
     Indication: ANALGESIC THERAPY
     Dosage: 40 MG/ML, UNK
     Route: 037
  4. HYDROMORPHONE [Suspect]
     Active Substance: HYDROMORPHONE
     Dosage: INTRATHECAL PUMP WAS REDUCED TO ONE TENTH OF PREVIOUS DOSE
  5. HYDROMORPHONE [Suspect]
     Active Substance: HYDROMORPHONE
     Indication: ANALGESIC THERAPY
     Dosage: 1 MG,
     Route: 037
  6. BUPIVACAINE. [Suspect]
     Active Substance: BUPIVACAINE
     Dosage: INTRATHECAL PUMP WAS REDUCED TO ONE TENTH OF PREVIOUS DOSE

REACTIONS (4)
  - Hypertensive encephalopathy [Recovering/Resolving]
  - Lethargy [Recovering/Resolving]
  - Medication error [Unknown]
  - Hypertensive emergency [Recovered/Resolved]
